FAERS Safety Report 10349627 (Version 1)
Quarter: 2014Q3

REPORT INFORMATION
  Report Type: Spontaneous
  Country: CA (occurrence: None)
  Receive Date: 20140728
  Receipt Date: 20140728
  Transmission Date: 20150326
  Serious: Yes (Life-Threatening)
  Sender: FDA-Public Use
  Company Number: None

PATIENT
  Age: 79 Year
  Sex: Male
  Weight: 150 kg

DRUGS (9)
  1. ZANTAC [Suspect]
     Active Substance: RANITIDINE HYDROCHLORIDE
     Indication: DYSPEPSIA
     Dosage: 150 MGM?1 PILL MIX 1-2X/100?1 PILL UP TO BID OF EITHER?ORAL
     Route: 048
     Dates: start: 20140615, end: 20140617
  2. TUMS [Concomitant]
     Active Substance: CALCIUM CARBONATE
  3. PEPCID COMPLETE [Suspect]
     Active Substance: CALCIUM CARBONATE\FAMOTIDINE\MAGNESIUM HYDROXIDE
  4. METFORMIN [Concomitant]
     Active Substance: METFORMIN HYDROCHLORIDE
  5. VITAMIN D [Concomitant]
     Active Substance: CHOLECALCIFEROL
  6. COUMADIN [Concomitant]
     Active Substance: WARFARIN SODIUM
  7. ZANTAC [Suspect]
     Active Substance: RANITIDINE HYDROCHLORIDE
     Indication: PEPTIC ULCER
     Dosage: 150 MGM?1 PILL MIX 1-2X/100?1 PILL UP TO BID OF EITHER?ORAL
     Route: 048
     Dates: start: 20140615, end: 20140617
  8. METOPROLOL [Concomitant]
     Active Substance: METOPROLOL
  9. ROLAIDS [Concomitant]
     Active Substance: CALCIUM CARBONATE\MAGNESIUM HYDROXIDE

REACTIONS (6)
  - International normalised ratio increased [None]
  - Muscle spasms [None]
  - Alanine aminotransferase increased [None]
  - Blood alkaline phosphatase increased [None]
  - Gamma-glutamyltransferase increased [None]
  - Liver function test abnormal [None]

NARRATIVE: CASE EVENT DATE: 201406
